FAERS Safety Report 5857324-0 (Version None)
Quarter: 2008Q3

REPORT INFORMATION
  Report Type: 
  Country: None (occurrence: None)
  Receive Date: 20080821
  Receipt Date: 20080821
  Transmission Date: 20090109
  Serious: No
  Sender: FDA-Public Use
  Company Number: None

PATIENT
  Age: 76 Year
  Sex: Male
  Weight: 65.7716 kg

DRUGS (1)
  1. NADOLOL [Suspect]
     Indication: PALPITATIONS
     Dosage: 20MG  ONE DAILY IF REQD PO
     Route: 048
     Dates: start: 20070214, end: 20080229

REACTIONS (3)
  - DRUG LEVEL DECREASED [None]
  - DYSPEPSIA [None]
  - PHARMACEUTICAL PRODUCT COMPLAINT [None]
